FAERS Safety Report 16880794 (Version 1)
Quarter: 2019Q4

REPORT INFORMATION
  Report Type: Spontaneous
  Country: ZA (occurrence: ZA)
  Receive Date: 20191003
  Receipt Date: 20191003
  Transmission Date: 20200122
  Serious: Yes (Death)
  Sender: FDA-Public Use
  Company Number: ZA-ABBVIE-19P-143-2948550-00

PATIENT
  Sex: Male

DRUGS (3)
  1. LIPANTHYL [Suspect]
     Active Substance: FENOFIBRATE
     Indication: BLOOD CHOLESTEROL ABNORMAL
     Route: 048
     Dates: start: 201810
  2. SPIRACTIN [Concomitant]
     Indication: DIURETIC THERAPY
     Route: 048
  3. STILNOX [Concomitant]
     Active Substance: ZOLPIDEM TARTRATE
     Indication: SLEEP DISORDER
     Dates: start: 201808

REACTIONS (1)
  - Death [Fatal]
